FAERS Safety Report 18678452 (Version 1)
Quarter: 2020Q4

REPORT INFORMATION
  Report Type: Other
  Country: US (occurrence: US)
  Receive Date: 20201230
  Receipt Date: 20201230
  Transmission Date: 20210114
  Serious: Yes (Hospitalization, Other)
  Sender: FDA-Public Use
  Company Number: US-ROCHE-2734924

PATIENT
  Age: 62 Year
  Sex: Female
  Weight: 102.15 kg

DRUGS (8)
  1. BACLOFEN. [Concomitant]
     Active Substance: BACLOFEN
     Indication: NEURALGIA
  2. OCREVUS [Suspect]
     Active Substance: OCRELIZUMAB
     Indication: RELAPSING-REMITTING MULTIPLE SCLEROSIS
     Dosage: FULL DOSE , UNKNOWN MG ;ONGOING: NO
     Route: 042
     Dates: start: 201809, end: 20200308
  3. TRAMADOL. [Concomitant]
     Active Substance: TRAMADOL
     Indication: NEURALGIA
     Dosage: STARTED BEFORE OCREVUS ;ONGOING: YES
     Route: 048
  4. BACLOFEN. [Concomitant]
     Active Substance: BACLOFEN
     Indication: MUSCLE SPASMS
     Dosage: STARTED BEFORE OCREVUS ;ONGOING: YES
     Route: 048
  5. AMPYRA [Concomitant]
     Active Substance: DALFAMPRIDINE
     Indication: MULTIPLE SCLEROSIS
     Dosage: STARTED QUITE A FEW YEARS AGO ;ONGOING: YES
     Route: 048
  6. METOPROLOLUM [Concomitant]
     Indication: HYPERTENSION
     Dosage: STARTED ABOUT 1 YEAR AGO ;ONGOING: YES
     Route: 048
  7. ASPIRIN. [Concomitant]
     Active Substance: ASPIRIN
     Indication: BLOOD PRESSURE MEASUREMENT
     Dosage: STARTED IN LAST 2 YEARS PATIENT STATED ^84^ MG ;ONGOING: YES
     Route: 048
  8. POTASSIUM [Concomitant]
     Active Substance: POTASSIUM
     Indication: BLOOD POTASSIUM DECREASED
     Dosage: STARTED ABOUT 4 TO 5 YEARS AGO ;ONGOING: YES
     Route: 048

REACTIONS (10)
  - Cellulitis [Recovered/Resolved]
  - Hypotension [Recovered/Resolved]
  - COVID-19 [Unknown]
  - Feeling cold [Recovered/Resolved]
  - Incoherent [Recovered/Resolved]
  - Sepsis [Recovered/Resolved]
  - Tenderness [Recovering/Resolving]
  - Drug hypersensitivity [Recovered/Resolved]
  - Multiple sclerosis relapse [Not Recovered/Not Resolved]
  - Hypertension [Recovered/Resolved]

NARRATIVE: CASE EVENT DATE: 2020
